FAERS Safety Report 7395027-4 (Version None)
Quarter: 2011Q2

REPORT INFORMATION
  Report Type: 
  Country: None (occurrence: None)
  Receive Date: 20110405
  Receipt Date: 20110323
  Transmission Date: 20111010
  Serious: Yes (Death)
  Sender: FDA-Public Use
  Company Number: US-ACTELION-A-US2011-44207

PATIENT

DRUGS (2)
  1. TRACLEER [Suspect]
     Indication: PULMONARY ARTERIAL HYPERTENSION
     Dosage: 62.5 MG, BID
     Route: 048
     Dates: start: 20100723, end: 20110101
  2. COUMADIN [Concomitant]

REACTIONS (2)
  - CARDIO-RESPIRATORY ARREST [None]
  - GASTROINTESTINAL HAEMORRHAGE [None]
